FAERS Safety Report 20232609 (Version 1)
Quarter: 2021Q4

REPORT INFORMATION
  Report Type: Spontaneous
  Country: IN (occurrence: IN)
  Receive Date: 20211227
  Receipt Date: 20211227
  Transmission Date: 20220303
  Serious: Yes (Other)
  Sender: FDA-Public Use
  Company Number: IN-AMNEAL PHARMACEUTICALS-2021-AMRX-05094

PATIENT
  Age: 45 Year
  Sex: Female

DRUGS (3)
  1. LINEZOLID [Suspect]
     Active Substance: LINEZOLID
     Indication: Drug-induced liver injury
     Dosage: UNK
     Route: 065
  2. MOXIFLOXACIN [Concomitant]
     Active Substance: MOXIFLOXACIN
     Indication: Drug-induced liver injury
     Dosage: UNK
     Route: 065
  3. TERIZIDONE [Concomitant]
     Active Substance: TERIZIDONE
     Indication: Drug-induced liver injury
     Dosage: UNK
     Route: 065

REACTIONS (1)
  - Posterior reversible encephalopathy syndrome [Recovered/Resolved]
